FAERS Safety Report 13359132 (Version 1)
Quarter: 2017Q1

REPORT INFORMATION
  Report Type: Spontaneous
  Country: JP (occurrence: JP)
  Receive Date: 20170322
  Receipt Date: 20170322
  Transmission Date: 20170429
  Serious: Yes (Other)
  Sender: FDA-Public Use
  Company Number: JP-MYLANLABS-2017M1016245

PATIENT

DRUGS (3)
  1. AMPI BIS PLUS [Suspect]
     Active Substance: AMPICILLIN SODIUM\SULBACTAM SODIUM
     Indication: PERITONITIS
     Route: 065
  2. PIPERACILLIN/TAZOBACTAM [Suspect]
     Active Substance: PIPERACILLIN SODIUM\TAZOBACTAM SODIUM
     Indication: PERITONITIS
     Route: 042
  3. MEROPENEM. [Concomitant]
     Active Substance: MEROPENEM
     Indication: PERITONITIS
     Dosage: UNK
     Route: 065

REACTIONS (1)
  - Linear IgA disease [Recovered/Resolved]
